FAERS Safety Report 9129515 (Version 1)
Quarter: 2013Q1

REPORT INFORMATION
  Report Type: Report from Study
  Country: CA (occurrence: CA)
  Receive Date: 20130228
  Receipt Date: 20130228
  Transmission Date: 20140127
  Serious: Yes (Other)
  Sender: FDA-Public Use
  Company Number: CA-ROCHE-1196270

PATIENT
  Age: 78 Year
  Sex: 0

DRUGS (3)
  1. XELODA [Suspect]
     Indication: COLORECTAL CANCER
     Route: 065
     Dates: start: 20110403, end: 20120513
  2. XELODA [Suspect]
     Route: 065
     Dates: start: 20120606, end: 20120928
  3. OXALIPLATIN [Suspect]
     Indication: COLORECTAL CANCER
     Route: 065
     Dates: start: 20120606, end: 20120928

REACTIONS (3)
  - Disease progression [Unknown]
  - Adverse drug reaction [Unknown]
  - Toxicity to various agents [Unknown]
